FAERS Safety Report 9161046 (Version 3)
Quarter: 2013Q2

REPORT INFORMATION
  Report Type: Spontaneous
  Country: US (occurrence: US)
  Receive Date: 20130313
  Receipt Date: 20130429
  Transmission Date: 20140414
  Serious: Yes (Other)
  Sender: FDA-Public Use
  Company Number: US-PFIZER INC-2013080940

PATIENT
  Age: 81 Year
  Sex: Female

DRUGS (4)
  1. ADVIL PM [Suspect]
     Indication: SLEEP DISORDER
     Dosage: UNK, AS NEEDED
     Route: 048
     Dates: start: 2013
  2. AMBIEN [Suspect]
     Indication: SLEEP DISORDER
     Dosage: UNK
  3. TOPROL [Concomitant]
     Indication: HYPERTENSION
     Dosage: 100 MG, 1X/DAY
  4. SYNTHROID [Concomitant]
     Indication: THYROID CANCER
     Dosage: 100 UG, 1X/DAY

REACTIONS (2)
  - Drug dependence [Unknown]
  - Drug ineffective [Unknown]
